FAERS Safety Report 5404009-0 (Version None)
Quarter: 2007Q3

REPORT INFORMATION
  Report Type: 
  Country: None (occurrence: None)
  Receive Date: 20070802
  Receipt Date: 20070724
  Transmission Date: 20080115
  Serious: Yes (Other)
  Sender: FDA-Public Use
  Company Number: B0475135A

PATIENT
  Sex: Female

DRUGS (7)
  1. NIQUITIN CQ 2MG LOZENGE [Suspect]
     Dosage: 15LOZ PER DAY
     Route: 002
     Dates: start: 20050412
  2. OLANZAPINE [Concomitant]
  3. ZOPICLONE [Concomitant]
  4. BENDROFLUMETHIAZIDE [Concomitant]
  5. LISINOPRIL [Concomitant]
  6. SIMVASTATIN [Concomitant]
  7. NIQUITIN 2MG [Concomitant]

REACTIONS (2)
  - DEPENDENCE [None]
  - WEIGHT INCREASED [None]
